FAERS Safety Report 16123536 (Version 1)
Quarter: 2019Q1

REPORT INFORMATION
  Report Type: Spontaneous
  Country: SE (occurrence: SE)
  Receive Date: 20190327
  Receipt Date: 20190327
  Transmission Date: 20190418
  Serious: Yes (Hospitalization)
  Sender: FDA-Public Use
  Company Number: SE-MYLANLABS-2019M1026577

PATIENT
  Age: 83 Year
  Sex: Female

DRUGS (19)
  1. MATRIFEN [Concomitant]
     Active Substance: FENTANYL
     Dosage: UNK
  2. PRIMPERAN [Concomitant]
     Active Substance: METOCLOPRAMIDE HYDROCHLORIDE
     Dosage: UNK UNK, PRN
  3. STESOLID [Concomitant]
     Active Substance: DIAZEPAM
     Dosage: UNK UNK, PRN
  4. CALCICHEW-D3 [Concomitant]
     Active Substance: CALCIUM\CHOLECALCIFEROL
  5. OVESTERIN [Concomitant]
     Active Substance: ESTRIOL
     Dosage: UNK UNK, PRN
  6. INOLAXOL                           /00561902/ [Concomitant]
     Dosage: UNK
  7. SAROTEN [Concomitant]
     Active Substance: AMITRIPTYLINE
     Dosage: UNK UNK, PRN
  8. DUPHALAC [Concomitant]
     Active Substance: LACTULOSE
     Dosage: UNK
  9. CILAXORAL [Concomitant]
     Active Substance: SODIUM PICOSULFATE
     Dosage: UNK
  10. MORPHINE [Concomitant]
     Active Substance: MORPHINE
     Dosage: UNK UNK, PRN
  11. TROMBYL [Concomitant]
     Active Substance: ASPIRIN
     Dosage: UNK
  12. GABAPENTIN 1A FARMA [Concomitant]
     Active Substance: GABAPENTIN
     Dosage: UNK
  13. METOPROLOL. [Suspect]
     Active Substance: METOPROLOL
     Indication: PRODUCT USED FOR UNKNOWN INDICATION
     Dosage: 200 MILLIGRAM, QD
  14. OMEPRAZOLE. [Concomitant]
     Active Substance: OMEPRAZOLE
     Dosage: UNK
  15. ATORVASTATIN [Concomitant]
     Active Substance: ATORVASTATIN
     Dosage: UNK
  16. OLANZAPINE. [Concomitant]
     Active Substance: OLANZAPINE
     Dosage: UNK
  17. PAPAVERINE [Concomitant]
     Active Substance: PAPAVERINE
     Dosage: UNK UNK, PRN
  18. PANODIL [Concomitant]
     Active Substance: ACETAMINOPHEN
     Dosage: UNK
  19. DIMETIKON MEDA [Concomitant]
     Dosage: UNK UNK, PRN

REACTIONS (5)
  - Overdose [Unknown]
  - Cardiac failure [Unknown]
  - General physical health deterioration [Unknown]
  - Oedema peripheral [Unknown]
  - Chronotropic incompetence [Unknown]

NARRATIVE: CASE EVENT DATE: 20180628
